FAERS Safety Report 6385883-0 (Version None)
Quarter: 2009Q4

REPORT INFORMATION
  Report Type: 
  Country: None (occurrence: None)
  Receive Date: 20091002
  Receipt Date: 20090226
  Transmission Date: 20100525
  Serious: No
  Sender: FDA-Public Use
  Company Number: US-ASTRAZENECA-2009UW01844

PATIENT
  Age: 59 Year
  Sex: Female
  Weight: 72.6 kg

DRUGS (3)
  1. ARIMIDEX [Suspect]
     Indication: BREAST CANCER
     Dosage: DAILY
     Route: 048
     Dates: start: 20080101
  2. CALCIUM [Concomitant]
  3. PAXIL [Concomitant]
     Indication: DEPRESSION

REACTIONS (4)
  - ACNE [None]
  - FURUNCLE [None]
  - HOT FLUSH [None]
  - WEIGHT INCREASED [None]
